FAERS Safety Report 15581344 (Version 2)
Quarter: 2019Q3

REPORT INFORMATION
  Report Type: Spontaneous
  Country: US (occurrence: US)
  Receive Date: 20181102
  Receipt Date: 20190805
  Transmission Date: 20191004
  Serious: Yes (Other)
  Sender: FDA-Public Use
  Company Number: US-RADIUS HEALTH INC.-2018US001750

PATIENT
  Sex: Female
  Weight: 62.59 kg

DRUGS (7)
  1. TYMLOS [Suspect]
     Active Substance: ABALOPARATIDE
     Indication: OSTEOPOROSIS POSTMENOPAUSAL
     Dosage: 80 MCG, QD
     Route: 058
     Dates: start: 201808
  2. VITAMIN D3 [Concomitant]
     Active Substance: CHOLECALCIFEROL
     Indication: PRODUCT USED FOR UNKNOWN INDICATION
  3. CALCIUM CARBONATE. [Concomitant]
     Active Substance: CALCIUM CARBONATE
     Indication: PRODUCT USED FOR UNKNOWN INDICATION
  4. TYMLOS [Suspect]
     Active Substance: ABALOPARATIDE
     Dosage: 80 MCG, QD
     Route: 058
     Dates: start: 201808
  5. TYLENOL [Concomitant]
     Active Substance: ACETAMINOPHEN
     Indication: PAIN
  6. MULTIVITAMINS [Concomitant]
     Active Substance: VITAMINS
     Indication: PRODUCT USED FOR UNKNOWN INDICATION
  7. ALEVE [Concomitant]
     Active Substance: NAPROXEN SODIUM
     Indication: PRODUCT USED FOR UNKNOWN INDICATION

REACTIONS (25)
  - Hypotension [Unknown]
  - Feeling hot [Unknown]
  - Decreased appetite [Unknown]
  - Pollakiuria [Unknown]
  - Blood calcium increased [Unknown]
  - Feeling abnormal [Unknown]
  - Fracture pain [Unknown]
  - Pain [Not Recovered/Not Resolved]
  - Nausea [Unknown]
  - Head discomfort [Unknown]
  - Headache [Unknown]
  - Palpitations [Unknown]
  - Micturition urgency [Unknown]
  - Abdominal pain upper [Unknown]
  - Dizziness [Unknown]
  - Nephrolithiasis [Unknown]
  - Influenza like illness [Unknown]
  - Erythema [Unknown]
  - Depressed mood [Unknown]
  - Visual impairment [Unknown]
  - Flushing [Unknown]
  - Bone pain [Unknown]
  - Abdominal distension [Unknown]
  - Agitation [Unknown]
  - Heart rate increased [Unknown]
